FAERS Safety Report 6167398-8 (Version None)
Quarter: 2009Q2

REPORT INFORMATION
  Report Type: 
  Country: None (occurrence: None)
  Receive Date: 20090424
  Receipt Date: 20090422
  Transmission Date: 20091009
  Serious: No
  Sender: FDA-Public Use
  Company Number: US-B.I. PHARMACEUTICALS,INC./RIDGEFIELD-2009-BP-05094BP

PATIENT
  Age: 90 Year
  Sex: Male

DRUGS (3)
  1. FLOMAX [Suspect]
     Indication: POLLAKIURIA
     Dosage: .4MG
     Route: 048
     Dates: start: 20090406, end: 20090407
  2. MIDODRINE [Concomitant]
     Indication: DIZZINESS
     Route: 048
  3. PLAVIX [Concomitant]
     Route: 048

REACTIONS (3)
  - DIZZINESS [None]
  - DRUG INEFFECTIVE [None]
  - NAUSEA [None]
